FAERS Safety Report 10959860 (Version 2)
Quarter: 2015Q2

REPORT INFORMATION
  Report Type: Spontaneous
  Country: BR (occurrence: BR)
  Receive Date: 20150327
  Receipt Date: 20150401
  Transmission Date: 20150821
  Serious: Yes (Death)
  Sender: FDA-Public Use
  Company Number: BR-ACCORD-029663

PATIENT
  Age: 60 Year
  Sex: Female
  Weight: 63 kg

DRUGS (2)
  1. PACLITAXEL/PACLITAXEL LIPOSOME [Suspect]
     Active Substance: PACLITAXEL
     Indication: ENDOMETRIAL CANCER
     Dosage: STRENGTH: 6 MG/ML
     Route: 042
     Dates: start: 20150204
  2. CARBOPLATIN. [Concomitant]
     Active Substance: CARBOPLATIN
     Route: 042

REACTIONS (4)
  - Anaphylactic reaction [None]
  - Dyspnoea [Fatal]
  - Cyanosis [Fatal]
  - Oxygen saturation decreased [None]

NARRATIVE: CASE EVENT DATE: 20150204
